FAERS Safety Report 7988860-9 (Version None)
Quarter: 2011Q4

REPORT INFORMATION
  Report Type: 
  Country: None (occurrence: None)
  Receive Date: 20111219
  Receipt Date: 20111209
  Transmission Date: 20120403
  Serious: Yes (Hospitalization, Other)
  Sender: FDA-Public Use
  Company Number: MA-JNJFOC-20111205324

PATIENT
  Age: 86 Year
  Sex: Female

DRUGS (2)
  1. ENOXAPARIN [Concomitant]
     Indication: SURGERY
  2. XARELTO [Suspect]
     Indication: PRODUCT USED FOR UNKNOWN INDICATION
     Route: 048

REACTIONS (2)
  - THROMBOSIS [None]
  - HAEMATOMA [None]
